FAERS Safety Report 12641321 (Version 1)
Quarter: 2016Q3

REPORT INFORMATION
  Report Type: Spontaneous
  Country: US (occurrence: US)
  Receive Date: 20160810
  Receipt Date: 20160810
  Transmission Date: 20161109
  Serious: No
  Sender: FDA-Public Use
  Company Number: US-PFIZER INC-2016370200

PATIENT
  Sex: Male
  Weight: 87 kg

DRUGS (1)
  1. VIAGRA [Suspect]
     Active Substance: SILDENAFIL CITRATE
     Indication: ERECTILE DYSFUNCTION
     Dosage: 25MG ONE TABLET WHEN NEEDED 30MINUTES BEFORE SEX
     Route: 048
     Dates: start: 2016

REACTIONS (1)
  - Drug ineffective [Unknown]
